FAERS Safety Report 5655396-X (Version None)
Quarter: 2008Q1

REPORT INFORMATION
  Report Type: 
  Country: None (occurrence: None)
  Receive Date: 20080307
  Receipt Date: 20080212
  Transmission Date: 20080703
  Serious: Yes (Death, Hospitalization)
  Sender: FDA-Public Use
  Company Number: BR-MERCK-0802BRA00029

PATIENT
  Age: 71 Year
  Sex: Female
  Weight: 93 kg

DRUGS (12)
  1. ZOCOR [Suspect]
     Indication: DYSLIPIDAEMIA
     Route: 048
     Dates: start: 20020601
  2. ZOCOR [Suspect]
     Route: 048
  3. ENALAPRIL MALEATE [Concomitant]
     Indication: HYPERTENSION
     Route: 048
     Dates: start: 20020601
  4. ENALAPRIL MALEATE [Concomitant]
     Route: 048
     Dates: end: 20050610
  5. ASPIRIN [Concomitant]
     Indication: CARDIOVASCULAR DISORDER
     Route: 048
     Dates: start: 20020601
  6. HYDROCHLOROTHIAZIDE [Concomitant]
     Indication: HYPERTENSION
     Route: 048
     Dates: start: 20020601
  7. HYDROCHLOROTHIAZIDE [Concomitant]
     Route: 048
     Dates: end: 20050610
  8. RANITIDINE [Concomitant]
     Indication: PROPHYLAXIS AGAINST GASTROINTESTINAL ULCER
     Route: 048
     Dates: start: 20020601
  9. ATENOLOL [Concomitant]
     Indication: CORONARY ARTERY DISEASE
     Route: 048
     Dates: start: 20020601, end: 20050610
  10. INSULIN [Concomitant]
     Indication: DIABETES MELLITUS
     Route: 051
     Dates: start: 20020601
  11. OMEPRAZOLE [Concomitant]
     Indication: PROPHYLAXIS AGAINST GASTROINTESTINAL ULCER
     Route: 048
     Dates: end: 20050610
  12. METFORMIN [Concomitant]
     Indication: HYPERTENSION
     Route: 048
     Dates: end: 20050610

REACTIONS (9)
  - ABDOMINAL PAIN UPPER [None]
  - ATRIOVENTRICULAR BLOCK [None]
  - CARDIAC FLUTTER [None]
  - CARDIOPULMONARY FAILURE [None]
  - HYPERHIDROSIS [None]
  - NAUSEA [None]
  - SEPTIC SHOCK [None]
  - SYNCOPE [None]
  - VOMITING [None]
